FAERS Safety Report 9450582 (Version 1)
Quarter: 2013Q3

REPORT INFORMATION
  Report Type: Spontaneous
  Country: FR (occurrence: FR)
  Receive Date: 20130809
  Receipt Date: 20130809
  Transmission Date: 20140515
  Serious: Yes (Hospitalization)
  Sender: FDA-Public Use
  Company Number: FR-GLAXOSMITHKLINE-B0913237A

PATIENT
  Age: 73 Year
  Sex: Female

DRUGS (6)
  1. ZELITREX [Suspect]
     Indication: HERPES ZOSTER
     Dosage: 1G THREE TIMES PER DAY
     Route: 048
     Dates: start: 20130606, end: 20130619
  2. PARACETAMOL [Suspect]
     Indication: PRODUCT USED FOR UNKNOWN INDICATION
     Route: 048
     Dates: end: 20130619
  3. LAMALINE [Suspect]
     Indication: HERPES ZOSTER
     Dosage: 1UNIT THREE TIMES PER DAY
     Route: 048
     Dates: start: 20130606, end: 20130619
  4. SERESTA [Suspect]
     Indication: HERPES ZOSTER
     Dosage: 10MG THREE TIMES PER DAY
     Route: 048
     Dates: start: 20130606, end: 20130619
  5. COAPROVEL [Suspect]
     Indication: PRODUCT USED FOR UNKNOWN INDICATION
     Dosage: 1UNIT PER DAY
     Route: 048
     Dates: end: 20130619
  6. CRESTOR [Suspect]
     Indication: PRODUCT USED FOR UNKNOWN INDICATION
     Dosage: 5MG PER DAY
     Route: 048
     Dates: end: 20130619

REACTIONS (8)
  - Renal failure acute [Recovered/Resolved]
  - Encephalopathy [Recovered/Resolved]
  - Headache [Recovered/Resolved]
  - Vomiting [Recovered/Resolved]
  - Asthenia [Recovered/Resolved]
  - Oliguria [Recovered/Resolved]
  - Cognitive disorder [Recovered/Resolved]
  - Confusional state [Recovered/Resolved]
